FAERS Safety Report 6172331-9 (Version None)
Quarter: 2009Q2

REPORT INFORMATION
  Report Type: 
  Country: None (occurrence: None)
  Receive Date: 20090429
  Receipt Date: 20090422
  Transmission Date: 20091009
  Serious: Yes (Other)
  Sender: FDA-Public Use
  Company Number: US-GENENTECH-277791

PATIENT
  Sex: Female
  Weight: 56.69 kg

DRUGS (7)
  1. AVASTIN [Suspect]
     Indication: OVARIAN CANCER
     Dosage: 930 MG, Q14D
     Route: 042
     Dates: start: 20080609
  2. DOCETAXEL [Suspect]
     Indication: OVARIAN CANCER
     Dosage: 60 MG, Q3W
     Route: 042
     Dates: start: 20080609
  3. DOCETAXEL [Suspect]
     Dosage: 55 MG, QOW
     Route: 042
     Dates: start: 20080707
  4. DOXORUBICIN HCL [Concomitant]
     Indication: DRUG USE FOR UNKNOWN INDICATION
  5. TAXOL [Concomitant]
     Indication: OVARIAN CANCER
     Dosage: 128 MG, QOW
     Route: 065
     Dates: start: 20080811
  6. CARBOPLATIN [Concomitant]
     Indication: DRUG USE FOR UNKNOWN INDICATION
  7. GEMZAR [Concomitant]
     Indication: OVARIAN CANCER
     Dosage: 1280 MG, QOW
     Route: 065
     Dates: start: 20080818

REACTIONS (2)
  - DISEASE PROGRESSION [None]
  - PALMAR-PLANTAR ERYTHRODYSAESTHESIA SYNDROME [None]
